FAERS Safety Report 11352732 (Version 1)
Quarter: 2015Q3

REPORT INFORMATION
  Report Type: Spontaneous
  Country: US (occurrence: US)
  Receive Date: 20150807
  Receipt Date: 20150807
  Transmission Date: 20151125
  Serious: No
  Sender: FDA-Public Use
  Company Number: US-JNJFOC-20150118052

PATIENT
  Age: 55 Year
  Sex: Female
  Weight: 58.06 kg

DRUGS (14)
  1. DAILY VITAMIN [Concomitant]
     Active Substance: VITAMINS
     Route: 065
  2. WOMENS ROGAINE [Suspect]
     Active Substance: MINOXIDIL
     Indication: HAIR GROWTH ABNORMAL
     Dosage: DIRECTED AMOUNT
     Route: 061
  3. OTHER THERAPEUTIC MEDICATION [Concomitant]
     Active Substance: UNSPECIFIED INGREDIENT
     Indication: ROSACEA
     Dosage: SKIN CREAM FOR ROSACEA
     Route: 065
  4. VITAMIN AND MINERAL [Concomitant]
     Route: 065
  5. ALPHA LIPOIC ACID [Concomitant]
     Active Substance: .ALPHA.-LIPOIC ACID
     Route: 065
  6. VITAMIN B12 [Concomitant]
     Active Substance: CYANOCOBALAMIN
     Route: 065
  7. VITAMIN D3 [Concomitant]
     Active Substance: CHOLECALCIFEROL
     Route: 065
  8. BIOTIN [Concomitant]
     Active Substance: BIOTIN
     Route: 065
  9. CITRACAL [Concomitant]
     Active Substance: CALCIUM CITRATE
     Route: 065
  10. PROGESTERONE. [Concomitant]
     Active Substance: PROGESTERONE
     Indication: HORMONE REPLACEMENT THERAPY
     Route: 065
  11. TOCOPHEROL [Concomitant]
     Active Substance: TOCOPHEROL
     Route: 065
  12. WOMENS ROGAINE [Suspect]
     Active Substance: MINOXIDIL
     Route: 061
  13. FISH OIL [Concomitant]
     Active Substance: FISH OIL
     Route: 065
  14. IODINE [Concomitant]
     Active Substance: IODINE
     Route: 065

REACTIONS (2)
  - Inappropriate schedule of drug administration [Unknown]
  - Pruritus [Not Recovered/Not Resolved]
